FAERS Safety Report 19366997 (Version 3)
Quarter: 2021Q3

REPORT INFORMATION
  Report Type: Spontaneous
  Country: JP (occurrence: JP)
  Receive Date: 20210603
  Receipt Date: 20210702
  Transmission Date: 20211014
  Serious: Yes (Hospitalization, Other)
  Sender: FDA-Public Use
  Company Number: JP-PFIZER INC-2021580210

PATIENT
  Age: 8 Decade
  Sex: Male

DRUGS (11)
  1. METRONIDAZOLE. [Suspect]
     Active Substance: METRONIDAZOLE
     Indication: AMOEBIC COLITIS
     Dosage: 1500 MG, 1X/DAY
     Route: 048
  2. PREDNISOLONE. [Suspect]
     Active Substance: PREDNISOLONE
     Indication: LIVER DISORDER
     Dosage: 40 MG, 1X/DAY (AFTER THE 4TH DAY OF ILLNESS)
     Route: 048
  3. METFORMIN [Concomitant]
     Active Substance: METFORMIN HYDROCHLORIDE
     Dosage: 500 MG, DAILY
     Route: 048
  4. EMPAGLIFLOZIN [Concomitant]
     Active Substance: EMPAGLIFLOZIN
     Dosage: 10 MG, DAILY
     Route: 048
  5. SITAGLIPTIN [Concomitant]
     Active Substance: SITAGLIPTIN
     Dosage: 50 MG, DAILY
     Route: 048
  6. PREDNISOLONE. [Suspect]
     Active Substance: PREDNISOLONE
     Dosage: 15 MG (24TH DAY OF ILLNESS)
  7. CANDESARTAN. [Concomitant]
     Active Substance: CANDESARTAN
     Dosage: 2 MG, DAILY
     Route: 048
  8. METHYLPREDNISOLONE. [Suspect]
     Active Substance: METHYLPREDNISOLONE
     Dosage: 500 MG, 1X/DAY (PULSE)
  9. PREDNISOLONE. [Suspect]
     Active Substance: PREDNISOLONE
     Dosage: 20 MG (18TH DAY OF ILLNESS)
  10. INSULIN DEGLUDEC [Concomitant]
     Active Substance: INSULIN DEGLUDEC
     Dosage: 12 UNITS
  11. PREDNISOLONE. [Suspect]
     Active Substance: PREDNISOLONE
     Dosage: 30 MG (11TH DAY OF ILLNESS)

REACTIONS (3)
  - Gastrointestinal perforation [Recovering/Resolving]
  - Abdominal abscess [Unknown]
  - Amoebic colitis [Recovering/Resolving]
